FAERS Safety Report 5715658-4 (Version None)
Quarter: 2008Q2

REPORT INFORMATION
  Report Type: 
  Country: None (occurrence: None)
  Receive Date: 20080423
  Receipt Date: 20080423
  Transmission Date: 20081010
  Serious: Yes (Hospitalization)
  Sender: FDA-Public Use
  Company Number: None

PATIENT
  Sex: Female
  Weight: 73.1 kg

DRUGS (10)
  1. TRASTUZUMAB 4MG/KG 1, 2MG/KG WEEKLY -GENENTECH [Suspect]
     Indication: BREAST CANCER
     Dosage: 146MG WEEKLY X 52 IV
     Route: 042
     Dates: start: 20080229, end: 20080404
  2. PACLITAXEL [Suspect]
     Indication: BREAST CANCER
     Dosage: 147MG WEEKLY X 12 IV
     Route: 042
     Dates: start: 20080229, end: 20080328
  3. ALPHAGAN [Concomitant]
  4. CALCIUM CARBONATE [Concomitant]
  5. COMPAZINE [Concomitant]
  6. COSOPT [Concomitant]
  7. DEXAMETHASONE [Concomitant]
  8. EMLA [Concomitant]
  9. LISINOPRIL [Concomitant]
  10. LORAZEPAM [Concomitant]

REACTIONS (14)
  - CAPILLARY LEAK SYNDROME [None]
  - CARDIAC DISORDER [None]
  - CARDIAC FAILURE CONGESTIVE [None]
  - CATHETER RELATED INFECTION [None]
  - HYPERLIPIDAEMIA [None]
  - INFECTION [None]
  - INFLAMMATION [None]
  - LUNG INFILTRATION [None]
  - LYMPHADENOPATHY [None]
  - OEDEMA [None]
  - PLEURAL EFFUSION [None]
  - PNEUMONIA [None]
  - PULMONARY OEDEMA [None]
  - SUPERINFECTION [None]
